FAERS Safety Report 16048014 (Version 1)
Quarter: 2019Q1

REPORT INFORMATION
  Report Type: Spontaneous
  Country: NZ (occurrence: NZ)
  Receive Date: 20190307
  Receipt Date: 20190307
  Transmission Date: 20190418
  Serious: Yes (Other)
  Sender: FDA-Public Use
  Company Number: NZ-AMREGENT-20190382

PATIENT
  Age: 15 Year
  Sex: Female
  Weight: 60.6 kg

DRUGS (1)
  1. FERINJECT [Suspect]
     Active Substance: FERRIC CARBOXYMALTOSE
     Dosage: 1000 MG, 1 IN 1 TOTAL
     Route: 041
     Dates: start: 20181031, end: 20181031

REACTIONS (10)
  - Flushing [Recovered/Resolved]
  - Angioedema [Unknown]
  - Rash [Recovered/Resolved]
  - Urticaria [Recovered/Resolved]
  - Throat tightness [Recovered/Resolved]
  - Erythema [Recovered/Resolved]
  - Sensation of foreign body [Recovered/Resolved]
  - Respiratory distress [Unknown]
  - Anxiety [Recovered/Resolved]
  - Pruritus [Recovered/Resolved]

NARRATIVE: CASE EVENT DATE: 20181031
